FAERS Safety Report 21749195 (Version 1)
Quarter: 2022Q4

REPORT INFORMATION
  Report Type: Spontaneous
  Country: US (occurrence: US)
  Receive Date: 20221219
  Receipt Date: 20221219
  Transmission Date: 20230113
  Serious: Yes (Other)
  Sender: FDA-Public Use
  Company Number: US-MYLANLABS-2022M1137979

PATIENT
  Sex: Female
  Weight: 45.36 kg

DRUGS (1)
  1. LATANOPROST [Suspect]
     Active Substance: LATANOPROST
     Indication: Glaucoma
     Dosage: UNK
     Route: 065
     Dates: end: 202211

REACTIONS (3)
  - Prinzmetal angina [Unknown]
  - Heart rate increased [Unknown]
  - Chest discomfort [Unknown]
